FAERS Safety Report 18943940 (Version 1)
Quarter: 2021Q1

REPORT INFORMATION
  Report Type: Report from Study
  Country: US (occurrence: US)
  Receive Date: 20210226
  Receipt Date: 20210226
  Transmission Date: 20210420
  Serious: Yes (Other)
  Sender: FDA-Public Use
  Company Number: US-ASTELLAS-2019US050340

PATIENT
  Age: 59 Year
  Sex: Male

DRUGS (1)
  1. ENZALUTAMIDE [Suspect]
     Active Substance: ENZALUTAMIDE
     Indication: PRODUCT USED FOR UNKNOWN INDICATION
     Route: 048

REACTIONS (8)
  - Hot flush [Unknown]
  - Pain in extremity [Unknown]
  - Night sweats [Unknown]
  - Constipation [Unknown]
  - Malaise [Unknown]
  - Influenza like illness [Unknown]
  - Erectile dysfunction [Unknown]
  - Swelling [Unknown]

NARRATIVE: CASE EVENT DATE: 20191216
